FAERS Safety Report 9684066 (Version 2)
Quarter: 2013Q4

REPORT INFORMATION
  Report Type: Spontaneous
  Country: US (occurrence: US)
  Receive Date: 20131112
  Receipt Date: 20131119
  Transmission Date: 20140711
  Serious: Yes (Other)
  Sender: FDA-Public Use
  Company Number: US-PFIZER INC-2013320768

PATIENT
  Age: 63 Year
  Sex: Male
  Weight: 109 kg

DRUGS (12)
  1. NORVASC [Suspect]
     Indication: HYPERTENSION
     Dosage: 5 MG, 1X/DAY
     Dates: start: 2005
  2. NORVASC [Suspect]
     Indication: BICUSPID AORTIC VALVE
  3. HYDROCHLOROTHIAZIDE [Suspect]
     Indication: HYPERTENSION
     Dosage: 25 MG, 1X/DAY
  4. ALTACE [Suspect]
     Indication: HYPERTENSION
     Dosage: 10 MG, 1X/DAY
  5. ALTACE [Suspect]
     Indication: BICUSPID AORTIC VALVE
  6. EFFEXOR XR [Suspect]
     Indication: DEPRESSION
     Dosage: 225 MG, 1X/DAY
     Dates: start: 1995, end: 2013
  7. EFFEXOR XR [Suspect]
     Indication: ANXIETY
  8. VENLAFAXINE HCL [Suspect]
     Indication: DEPRESSION
     Dosage: UNK
  9. VENLAFAXINE HCL [Suspect]
     Indication: ANXIETY
  10. AVODART [Concomitant]
     Indication: BENIGN PROSTATIC HYPERPLASIA
     Dosage: 0.5 MG, 1X/DAY
  11. SIMVASTATIN [Concomitant]
     Indication: BLOOD CHOLESTEROL ABNORMAL
     Dosage: 10 MG, 1X/DAY
  12. NEXIUM [Concomitant]
     Dosage: 40 MG, 1X/DAY

REACTIONS (5)
  - Suicidal ideation [Unknown]
  - Mood altered [Unknown]
  - Physical abuse [Unknown]
  - Anger [Unknown]
  - Drug ineffective [Unknown]
